FAERS Safety Report 23595024 (Version 5)
Quarter: 2024Q2

REPORT INFORMATION
  Report Type: Spontaneous
  Country: AU (occurrence: AU)
  Receive Date: 20240305
  Receipt Date: 20240521
  Transmission Date: 20240716
  Serious: Yes (Hospitalization, Other)
  Sender: FDA-Public Use
  Company Number: None

PATIENT
  Sex: Male
  Weight: 2.71 kg

DRUGS (27)
  1. LINEZOLID [Suspect]
     Active Substance: LINEZOLID
     Indication: Mycobacterial infection
     Dosage: 20 MILLIGRAM/KILOGRAM (SUSPENSION)
     Route: 048
  2. LINEZOLID [Suspect]
     Active Substance: LINEZOLID
     Indication: Congenital tuberculosis
     Dosage: UNK (600 MG/300 ML INJECTION)
     Route: 042
  3. LINEZOLID [Suspect]
     Active Substance: LINEZOLID
     Dosage: 15 MILLIGRAM/KILOGRAM IV/PO IN 2 DIVIDED DOSES; FROM 3RD WEEK OF TREATMENT TO 11TH WEEK OF TREATMENT
     Route: 042
     Dates: start: 20220202
  4. LINEZOLID [Suspect]
     Active Substance: LINEZOLID
     Dosage: 20 MILLIGRAM/KILOGRAM IN 2 DIVIDED DOSES; FROM 12TH WEEK TO 6 MONTHS OF TREATMENT
     Route: 048
     Dates: start: 20220202
  5. LINEZOLID [Suspect]
     Active Substance: LINEZOLID
     Dosage: 15 MILLIGRAM/KILOGRAM, QD (FROM 12 MONTHS OF TREATMENT TO 13 MONTHS OF TREATMENT)
     Route: 048
  6. LINEZOLID [Suspect]
     Active Substance: LINEZOLID
     Dosage: 15 MILLIGRAM/KILOGRAM, QD (EVERY 1 DAY)
     Route: 065
  7. BEDAQUILINE [Concomitant]
     Active Substance: BEDAQUILINE
     Indication: Congenital tuberculosis
     Dosage: 10 MILLIGRAM (EVERY 3 WEEK)
     Route: 048
  8. BEDAQUILINE [Concomitant]
     Active Substance: BEDAQUILINE
     Dosage: 30 MILLIGRAM, QD (EVERY 1 DAY)
     Route: 048
  9. BEDAQUILINE [Concomitant]
     Active Substance: BEDAQUILINE
     Dosage: 20 MILLIGRAM (EVERY 3 WEEK)
     Route: 048
  10. BEDAQUILINE [Concomitant]
     Active Substance: BEDAQUILINE
     Dosage: UNK (RE-STARTED)
     Route: 065
  11. CLOFAZIMINE [Concomitant]
     Active Substance: CLOFAZIMINE
     Indication: Congenital tuberculosis
     Dosage: 5 MILLIGRAM/KILOGRAM, QD
     Route: 048
  12. CYCLOSERINE [Concomitant]
     Active Substance: CYCLOSERINE
     Indication: Mycobacterial infection
     Dosage: 20 MILLIGRAM/KILOGRAM (250 MG CAPSULE DISPERSED IN 10 ML WFI) IN 2 DIVIDED DOSES; FROM 3 WEEKS OF TR
     Route: 048
  13. CYCLOSERINE [Concomitant]
     Active Substance: CYCLOSERINE
     Indication: Congenital tuberculosis
  14. DELAMANID [Concomitant]
     Active Substance: DELAMANID
     Indication: Congenital tuberculosis
     Dosage: 50 MILLIGRAM
     Route: 048
  15. DELAMANID [Concomitant]
     Active Substance: DELAMANID
     Dosage: 25 MILLIGRAM, QD
     Route: 048
  16. DELAMANID [Concomitant]
     Active Substance: DELAMANID
     Dosage: 12.5 MILLIGRAM, QD
     Route: 048
  17. DELAMANID [Concomitant]
     Active Substance: DELAMANID
     Dosage: UNK (RE-STARTED)
     Route: 065
  18. MOXIFLOXACIN [Concomitant]
     Active Substance: MOXIFLOXACIN
     Indication: Congenital tuberculosis
     Dosage: 15 MILLIGRAM/KILOGRAM, QD (INJECTION)
     Route: 042
  19. MOXIFLOXACIN [Concomitant]
     Active Substance: MOXIFLOXACIN
     Dosage: 10 MILLIGRAM/KILOGRAM, QD (SUSPENSION)
     Route: 048
  20. MOXIFLOXACIN [Concomitant]
     Active Substance: MOXIFLOXACIN
     Dosage: 20 MILLIGRAM/KILOGRAM, QD
     Route: 065
  21. OXYGEN [Concomitant]
     Active Substance: OXYGEN
     Indication: Congenital tuberculosis
     Dosage: UNK
     Route: 045
  22. OXYGEN [Concomitant]
     Active Substance: OXYGEN
     Indication: Mycobacterial infection
  23. OXYGEN [Concomitant]
     Active Substance: OXYGEN
     Indication: Chronic respiratory disease
  24. PROTIONAMIDE [Concomitant]
     Active Substance: PROTIONAMIDE
     Indication: Congenital tuberculosis
     Dosage: 20 MILLIGRAM/KILOGRAM (IN 2 DIVIDED DOSES FROM 3RD WEEK OF TREATMENT TO 7TH WEEK OF TREATMENT)
     Route: 048
  25. PROTIONAMIDE [Concomitant]
     Active Substance: PROTIONAMIDE
     Indication: Mycobacterial infection
  26. PYRIDOXINE [Concomitant]
     Active Substance: PYRIDOXINE
     Indication: Congenital tuberculosis
     Dosage: 10 MILLIGRAM, QD (EVERY 1 DAY)
     Route: 042
  27. PYRIDOXINE [Concomitant]
     Active Substance: PYRIDOXINE
     Indication: Mycobacterial infection
     Dosage: 10 MILLIGRAM, QD
     Route: 048

REACTIONS (3)
  - Deafness unilateral [Not Recovered/Not Resolved]
  - Deafness neurosensory [Not Recovered/Not Resolved]
  - Neutropenia [Recovered/Resolved]

NARRATIVE: CASE EVENT DATE: 20220404
